FAERS Safety Report 7259567-0 (Version None)
Quarter: 2011Q1

REPORT INFORMATION
  Report Type: 
  Country: None (occurrence: None)
  Receive Date: 20110130
  Receipt Date: 20101014
  Transmission Date: 20110831
  Serious: No
  Sender: FDA-Public Use
  Company Number: US-ABBOTT-08P-163-0481826-00

PATIENT
  Sex: Female
  Weight: 61.29 kg

DRUGS (5)
  1. TRICOR [Concomitant]
     Indication: BLOOD TRIGLYCERIDES INCREASED
  2. PREDNISONE [Concomitant]
     Indication: CROHN'S DISEASE
     Route: 048
  3. HUMIRA [Suspect]
     Indication: CROHN'S DISEASE
     Route: 058
     Dates: start: 20080925
  4. SYNTHROID [Concomitant]
     Indication: THYROID DISORDER
  5. LISINOPRIL [Concomitant]
     Indication: BLOOD PRESSURE
     Route: 048

REACTIONS (11)
  - INJECTION SITE HAEMORRHAGE [None]
  - PYREXIA [None]
  - DIZZINESS [None]
  - INJECTION SITE ERYTHEMA [None]
  - BLOOD PRESSURE ABNORMAL [None]
  - BLOOD PRESSURE FLUCTUATION [None]
  - HERPES ZOSTER [None]
  - INJECTION SITE MACULE [None]
  - HEADACHE [None]
  - PALPITATIONS [None]
  - BLOOD PRESSURE INCREASED [None]
